FAERS Safety Report 21095343 (Version 1)
Quarter: 2022Q3

REPORT INFORMATION
  Report Type: Report from Study
  Country: ES (occurrence: ES)
  Receive Date: 20220718
  Receipt Date: 20220718
  Transmission Date: 20221026
  Serious: Yes (Other)
  Sender: FDA-Public Use
  Company Number: ES-ABBVIE-22K-144-4466447-00

PATIENT
  Sex: Male

DRUGS (2)
  1. HUMIRA [Suspect]
     Active Substance: ADALIMUMAB
     Indication: Ankylosing spondylitis
     Dosage: 4 YEARS
     Route: 058
  2. TAPENTADOL [Concomitant]
     Active Substance: TAPENTADOL
     Indication: Ankylosing spondylitis
     Dosage: 4 YEARS

REACTIONS (3)
  - Coronary artery occlusion [Unknown]
  - Myocardial infarction [Unknown]
  - Pain [Unknown]

NARRATIVE: CASE EVENT DATE: 20211001
